FAERS Safety Report 8042517-7 (Version None)
Quarter: 2012Q1

REPORT INFORMATION
  Report Type: 
  Country: None (occurrence: None)
  Receive Date: 20120112
  Receipt Date: 20120106
  Transmission Date: 20120608
  Serious: Yes (Death, Hospitalization)
  Sender: FDA-Public Use
  Company Number: US-ALEXION PHARMACEUTICALS INC.-A201101685

PATIENT
  Age: 9 Month
  Sex: Female

DRUGS (2)
  1. SOLIRIS [Suspect]
     Indication: HAEMOLYTIC URAEMIC SYNDROME
     Dosage: UNK
     Route: 042
     Dates: start: 20111104, end: 20111106
  2. KEPPRA [Concomitant]
     Indication: CONVULSION
     Dosage: 200 MG, BID (EVERY 12 HOURS)

REACTIONS (1)
  - GENERAL PHYSICAL HEALTH DETERIORATION [None]
